FAERS Safety Report 9353931 (Version 1)
Quarter: 2013Q2

REPORT INFORMATION
  Report Type: Spontaneous
  Country: US (occurrence: US)
  Receive Date: 20130618
  Receipt Date: 20130618
  Transmission Date: 20140414
  Serious: Yes (Other)
  Sender: FDA-Public Use
  Company Number: US-PFIZER INC-2013178537

PATIENT
  Age: 71 Year
  Sex: Female
  Weight: 81.63 kg

DRUGS (1)
  1. DETROL LA [Suspect]
     Indication: HYPERTONIC BLADDER
     Dosage: 4 MG, UNK
     Dates: end: 201304

REACTIONS (2)
  - Thyroid disorder [Unknown]
  - Drug ineffective [Unknown]
